FAERS Safety Report 24630862 (Version 2)
Quarter: 2025Q4

REPORT INFORMATION
  Report Type: Spontaneous
  Country: US (occurrence: US)
  Receive Date: 20241118
  Receipt Date: 20251024
  Transmission Date: 20260117
  Serious: No
  Sender: SECURA BIO
  Company Number: US-SECURA BIO, INC.-2023-SECUR-US000114

PATIENT

DRUGS (1)
  1. COPIKTRA [Suspect]
     Active Substance: DUVELISIB
     Indication: Follicular lymphoma stage II
     Dosage: 25 MG, BID
     Route: 048
     Dates: start: 202212

REACTIONS (2)
  - Gingival pain [Unknown]
  - Product use in unapproved indication [Not Recovered/Not Resolved]
